FAERS Safety Report 17547241 (Version 3)
Quarter: 2020Q2

REPORT INFORMATION
  Report Type: Spontaneous
  Country: DE (occurrence: DE)
  Receive Date: 20200316
  Receipt Date: 20200408
  Transmission Date: 20200713
  Serious: Yes (Other)
  Sender: FDA-Public Use
  Company Number: NVSC2020DE074756

PATIENT

DRUGS (1)
  1. LEVETIRACETAM HEXAL 100 MG/ML, DRANK [Suspect]
     Active Substance: LEVETIRACETAM
     Indication: PRODUCT USED FOR UNKNOWN INDICATION
     Dosage: 100 MG/ML, UNKNOWN
     Route: 065

REACTIONS (3)
  - Seizure [Unknown]
  - Drug level below therapeutic [Unknown]
  - Drug ineffective [Unknown]
